FAERS Safety Report 8598618-8 (Version None)
Quarter: 2012Q3

REPORT INFORMATION
  Report Type: 
  Country: None (occurrence: None)
  Receive Date: 20120816
  Receipt Date: 20120806
  Transmission Date: 20120928
  Serious: Yes (Other)
  Sender: FDA-Public Use
  Company Number: FR-ROCHE-1098467

PATIENT
  Age: 58 Year
  Sex: Female
  Weight: 40 kg

DRUGS (4)
  1. CLONAZEPAM [Suspect]
     Indication: CRANIAL NERVE DISORDER
     Route: 048
     Dates: start: 20030101
  2. ASPEGIC 1000 [Concomitant]
  3. BISOPROLOL FUMARATE [Concomitant]
  4. METFORMIN HCL [Concomitant]

REACTIONS (8)
  - VISUAL IMPAIRMENT [None]
  - WEIGHT DECREASED [None]
  - ALOPECIA [None]
  - CRYING [None]
  - WITHDRAWAL SYNDROME [None]
  - INSOMNIA [None]
  - MUSCLE FATIGUE [None]
  - HALLUCINATION, VISUAL [None]
